FAERS Safety Report 25287519 (Version 1)
Quarter: 2025Q2

REPORT INFORMATION
  Report Type: Spontaneous
  Country: US (occurrence: None)
  Receive Date: 20250508
  Receipt Date: 20250508
  Transmission Date: 20250716
  Serious: Yes (Hospitalization)
  Sender: FDA-CTU
  Company Number: None

PATIENT
  Age: 78 Year
  Sex: Male
  Weight: 81.04 kg

DRUGS (4)
  1. DONANEMAB [Suspect]
     Active Substance: DONANEMAB
     Route: 041
     Dates: start: 20250424, end: 20250424
  2. SODIUM CHLORIDE [Concomitant]
     Active Substance: SODIUM CHLORIDE
     Dates: start: 20250424, end: 20250425
  3. METHYLPREDNISOLONE [Concomitant]
     Active Substance: METHYLPREDNISOLONE
     Dates: start: 20250424, end: 20250424
  4. DIPHENHYDRAMINE [Concomitant]
     Active Substance: DIPHENHYDRAMINE
     Dates: start: 20250424, end: 20250425

REACTIONS (3)
  - Infusion related reaction [None]
  - Rash pruritic [None]
  - Dyspnoea [None]

NARRATIVE: CASE EVENT DATE: 20250424
